FAERS Safety Report 21471266 (Version 2)
Quarter: 2022Q4

REPORT INFORMATION
  Report Type: Spontaneous
  Country: US (occurrence: US)
  Receive Date: 20221018
  Receipt Date: 20221027
  Transmission Date: 20230113
  Serious: Yes (Death, Other)
  Sender: FDA-Public Use
  Company Number: US-PFIZER INC-PV202200078419

PATIENT
  Age: 68 Year
  Sex: Female

DRUGS (4)
  1. CEFEPIME HYDROCHLORIDE [Suspect]
     Active Substance: CEFEPIME HYDROCHLORIDE
     Indication: Cavernous sinus thrombosis
     Dosage: UNK
  2. AMPHOTERICIN B [Suspect]
     Active Substance: AMPHOTERICIN B
     Indication: Cavernous sinus thrombosis
     Dosage: UNK
  3. IMIPINEM CILASTATINA FUSA [Concomitant]
     Indication: Cavernous sinus thrombosis
     Dosage: UNK
  4. VANCOMYCIN [Concomitant]
     Active Substance: VANCOMYCIN
     Indication: Cavernous sinus thrombosis
     Dosage: UNK

REACTIONS (2)
  - Drug ineffective [Fatal]
  - Condition aggravated [Fatal]
